FAERS Safety Report 7532510-2 (Version None)
Quarter: 2011Q2

REPORT INFORMATION
  Report Type: 
  Country: None (occurrence: None)
  Receive Date: 20110608
  Receipt Date: 20110526
  Transmission Date: 20111010
  Serious: Yes (Other)
  Sender: FDA-Public Use
  Company Number: PHHY2011JP42466

PATIENT
  Sex: Female
  Weight: 56 kg

DRUGS (2)
  1. FEMARA [Suspect]
     Indication: METASTASES TO SKIN
     Dosage: 1 DF, DAILY
     Route: 048
     Dates: start: 20070101, end: 20070401
  2. ARIMIDEX [Concomitant]
     Dosage: 1 DF, UNK
     Dates: start: 20041001

REACTIONS (2)
  - ECCHYMOSIS [None]
  - HAEMORRHAGE SUBCUTANEOUS [None]
